FAERS Safety Report 24304454 (Version 5)
Quarter: 2024Q4

REPORT INFORMATION
  Report Type: Spontaneous
  Country: DE (occurrence: DE)
  Receive Date: 20240910
  Receipt Date: 20241009
  Transmission Date: 20250115
  Serious: Yes (Hospitalization)
  Sender: NOVARTIS
  Company Number: DE-002147023-NVSC2024DE180520

PATIENT
  Age: 26 Year
  Sex: Female

DRUGS (2)
  1. GILENYA [Suspect]
     Active Substance: FINGOLIMOD HYDROCHLORIDE
     Indication: Cerebrovascular disorder
     Dosage: UNK
     Route: 065
     Dates: start: 201710
  2. GILENYA [Suspect]
     Active Substance: FINGOLIMOD HYDROCHLORIDE
     Indication: Fatigue

REACTIONS (14)
  - Visual field defect [Recovering/Resolving]
  - Fall [Unknown]
  - Dizziness [Unknown]
  - Disease progression [Unknown]
  - Central nervous system lesion [Unknown]
  - Fatigue [Unknown]
  - Paraesthesia [Unknown]
  - Depression [Unknown]
  - Disturbance in attention [Unknown]
  - Colour blindness [Recovering/Resolving]
  - Ataxia [Recovering/Resolving]
  - Dysaesthesia [Unknown]
  - Visual impairment [Recovering/Resolving]
  - Hepatic enzyme increased [Unknown]

NARRATIVE: CASE EVENT DATE: 20180701
